FAERS Safety Report 10239250 (Version 2)
Quarter: 2014Q3

REPORT INFORMATION
  Report Type: Spontaneous
  Country: ES (occurrence: ES)
  Receive Date: 20140616
  Receipt Date: 20140723
  Transmission Date: 20150326
  Serious: Yes (Hospitalization, Other)
  Sender: FDA-Public Use
  Company Number: ES-US-EMD SERONO, INC.-7298369

PATIENT
  Age: 10 Year
  Sex: Male

DRUGS (4)
  1. SAIZEN [Suspect]
     Active Substance: SOMATROPIN
     Indication: FOETAL GROWTH RESTRICTION
     Route: 058
     Dates: start: 201306
  2. SAIZEN [Suspect]
     Active Substance: SOMATROPIN
     Dosage: DOSE REDUCED (UNSPECIFIED)
     Route: 058
  3. SAIZEN [Suspect]
     Active Substance: SOMATROPIN
     Dosage: DOSE INCREASED (UNSPECIFIED)
     Route: 058
  4. HUMATROPE [Suspect]
     Active Substance: SOMATROPIN
     Indication: FOETAL GROWTH RESTRICTION
     Dates: start: 2008, end: 201306

REACTIONS (5)
  - Encephalitis [Recovered/Resolved]
  - Mental impairment [Unknown]
  - Hypertension [Unknown]
  - Vomiting [Recovered/Resolved]
  - Headache [Recovered/Resolved]

NARRATIVE: CASE EVENT DATE: 201306
